FAERS Safety Report 8403727-X (Version None)
Quarter: 2012Q2

REPORT INFORMATION
  Report Type: 
  Country: None (occurrence: None)
  Receive Date: 20120601
  Receipt Date: 20110816
  Transmission Date: 20120825
  Serious: No
  Sender: FDA-Public Use
  Company Number: US-NOVEN-11US002987

PATIENT
  Sex: Female
  Weight: 37.188 kg

DRUGS (5)
  1. DAYTRANA [Suspect]
     Indication: ATTENTION DEFICIT/HYPERACTIVITY DISORDER
     Dosage: 30 MG, QD
     Route: 062
     Dates: start: 20070101
  2. METHYLPHENIDATE [Concomitant]
     Indication: ATTENTION DEFICIT/HYPERACTIVITY DISORDER
     Dosage: 20 MG, QD
     Route: 048
     Dates: start: 20070101
  3. RISPERDAL [Concomitant]
     Indication: INSOMNIA
     Dosage: 6.5 MG, QD
     Route: 048
     Dates: start: 20070101
  4. TRILEPTAL [Concomitant]
     Indication: MOOD SWINGS
     Dosage: 900 MG, QD
     Route: 048
     Dates: start: 20080101
  5. PREVACID [Concomitant]
     Dosage: 15 MG, QD
     Route: 048
     Dates: start: 20110501

REACTIONS (4)
  - PRODUCT QUALITY ISSUE [None]
  - DRUG INEFFECTIVE [None]
  - DRUG ADMINISTRATION ERROR [None]
  - ABNORMAL BEHAVIOUR [None]
